FAERS Safety Report 7187144-9 (Version None)
Quarter: 2010Q4

REPORT INFORMATION
  Report Type: 
  Country: None (occurrence: None)
  Receive Date: 20101222
  Receipt Date: 20101209
  Transmission Date: 20110411
  Serious: Yes (Hospitalization, Other)
  Sender: FDA-Public Use
  Company Number: US-ELI_LILLY_AND_COMPANY-US201004006837

PATIENT
  Sex: Female

DRUGS (13)
  1. FORTEO [Suspect]
     Indication: OSTEOPOROSIS
     Dosage: 20 UG, DAILY (1/D)
     Dates: start: 20091201
  2. MEDROL [Concomitant]
  3. CELEBREX [Concomitant]
  4. DEPAKOTE [Concomitant]
  5. XANAX [Concomitant]
  6. AMBIEN [Concomitant]
  7. LEFLUNOMIDE [Concomitant]
  8. REVATIO [Concomitant]
  9. NEXIUM [Concomitant]
  10. SINEMET [Concomitant]
  11. VITAMIN D [Concomitant]
  12. CALCIUM [Concomitant]
  13. MULTI-VITAMIN [Concomitant]

REACTIONS (12)
  - DEVICE DISLOCATION [None]
  - DIARRHOEA [None]
  - FALL [None]
  - FRACTURED SACRUM [None]
  - INTERVERTEBRAL DISC PROTRUSION [None]
  - NEPHROLITHIASIS [None]
  - PATHOLOGICAL FRACTURE [None]
  - PROCEDURAL PAIN [None]
  - PUBIS FRACTURE [None]
  - SPINAL COLUMN STENOSIS [None]
  - STAPHYLOCOCCAL INFECTION [None]
  - VOMITING [None]
